FAERS Safety Report 9120701 (Version 4)
Quarter: 2013Q1

REPORT INFORMATION
  Report Type: Spontaneous
  Country: JP (occurrence: JP)
  Receive Date: 20130226
  Receipt Date: 20130322
  Transmission Date: 20140127
  Serious: Yes (Hospitalization)
  Sender: FDA-Public Use
  Company Number: JP-VERTEX PHARMACEUTICALS INC.-2013-002651

PATIENT
  Age: 59 Year
  Sex: Female

DRUGS (7)
  1. TELAVIC [Suspect]
     Indication: CHRONIC HEPATITIS C
     Dosage: 1500 MG, QD
     Route: 048
     Dates: start: 20130130, end: 20130218
  2. PEGINTERFERON ALFA-2B [Suspect]
     Indication: CHRONIC HEPATITIS C
     Dosage: 1.5 ?G/KG, QW
     Route: 058
     Dates: start: 20130130, end: 20130218
  3. RIBAVIRIN [Suspect]
     Indication: CHRONIC HEPATITIS C
     Dosage: 400 MG, QD
     Route: 048
     Dates: start: 20130130, end: 20130218
  4. CONIEL [Concomitant]
     Dosage: 4 MG, QD
     Route: 048
  5. JANUVIA [Concomitant]
     Dosage: 50 MG, QD
     Route: 048
  6. NOVORAPID MIX [Concomitant]
     Dosage: 62 DF, QD
     Route: 058
  7. LOXONIN [Concomitant]
     Dosage: 60 MG, QD/PRN
     Route: 048
     Dates: start: 20130130, end: 20130218

REACTIONS (3)
  - Ascites [Recovered/Resolved]
  - Disturbance in attention [Recovered/Resolved]
  - Face oedema [Recovered/Resolved]
